FAERS Safety Report 23673688 (Version 1)
Quarter: 2024Q1

REPORT INFORMATION
  Report Type: Spontaneous
  Country: DE (occurrence: DE)
  Receive Date: 20240326
  Receipt Date: 20240326
  Transmission Date: 20240410
  Serious: Yes (Hospitalization)
  Sender: FDA-Public Use
  Company Number: DE-MALLINCKRODT-MNK202402083

PATIENT
  Age: 39 Year
  Sex: Female

DRUGS (1)
  1. UVADEX [Suspect]
     Active Substance: METHOXSALEN
     Indication: Chronic graft versus host disease in lung
     Dosage: UNKNOWN
     Route: 050

REACTIONS (1)
  - Dyspnoea [Unknown]
